FAERS Safety Report 23869843 (Version 1)
Quarter: 2024Q2

REPORT INFORMATION
  Report Type: Spontaneous
  Country: CN (occurrence: CN)
  Receive Date: 20240517
  Receipt Date: 20240517
  Transmission Date: 20240716
  Serious: Yes (Other)
  Sender: FDA-Public Use
  Company Number: CN-009507513-2405CHN004697

PATIENT
  Age: 74 Year
  Sex: Female

DRUGS (2)
  1. CANCIDAS [Suspect]
     Active Substance: CASPOFUNGIN ACETATE
     Indication: Antifungal treatment
     Dosage: 70 MILLIGRAM, ONCE
     Route: 041
     Dates: start: 20240308, end: 20240308
  2. CANCIDAS [Suspect]
     Active Substance: CASPOFUNGIN ACETATE
     Indication: Symptomatic treatment
     Dosage: 50 MILLIGRAM, QD
     Route: 041
     Dates: start: 20240308, end: 20240317

REACTIONS (5)
  - Obstructive pancreatitis [Unknown]
  - Blood bilirubin unconjugated increased [Not Recovered/Not Resolved]
  - Pancreatitis acute [Unknown]
  - Bilirubin conjugated increased [Not Recovered/Not Resolved]
  - Blood bilirubin increased [Not Recovered/Not Resolved]

NARRATIVE: CASE EVENT DATE: 20240101
